FAERS Safety Report 4444607-4 (Version None)
Quarter: 2004Q3

REPORT INFORMATION
  Report Type: 
  Country: None (occurrence: None)
  Receive Date: 20040907
  Receipt Date: 20040825
  Transmission Date: 20050211
  Serious: Yes (Life-Threatening)
  Sender: FDA-Public Use
  Company Number: 04H-114-0271925-00

PATIENT
  Sex: 0

DRUGS (3)
  1. DOPAMINE HCL [Suspect]
     Dosage: SEE IMAGE
     Route: 042
  2. MIDAZOLAM [Concomitant]
  3. FENTANYL [Concomitant]

REACTIONS (2)
  - MYOCARDIAL INFARCTION [None]
  - PROCEDURAL COMPLICATION [None]
